FAERS Safety Report 26204293 (Version 1)
Quarter: 2025Q4

REPORT INFORMATION
  Report Type: Spontaneous
  Country: US (occurrence: US)
  Receive Date: 20251226
  Receipt Date: 20251226
  Transmission Date: 20260118
  Serious: Yes (Life-Threatening, Hospitalization)
  Sender: SANDOZ
  Company Number: US-MLMSERVICE-20251212-PI747079-00224-2

PATIENT
  Age: 11 Year
  Sex: Female
  Weight: 33.2 kg

DRUGS (7)
  1. GUANFACINE [Interacting]
     Active Substance: GUANFACINE
     Indication: Product used for unknown indication
     Dosage: 1 MG,  SHE TOOK THAT MORNING
  2. METHYLPHENIDATE HYDROCHLORIDE [Interacting]
     Active Substance: METHYLPHENIDATE HYDROCHLORIDE
     Indication: Product used for unknown indication
     Dosage: 20 MG, SHE TOOK THAT MORNING, ER
  3. MIDAZOLAM HYDROCHLORIDE [Interacting]
     Active Substance: MIDAZOLAM HYDROCHLORIDE
     Indication: Sedative therapy
     Dosage: 15 MG (.5 MG/KG, MAX 15 MG)
  4. KETAMINE [Interacting]
     Active Substance: KETAMINE
     Indication: Sedative therapy
     Dosage: 199.2 MG ( 6 MG/KG)
  5. FERROUS SULFATE [Concomitant]
     Active Substance: FERROUS SULFATE
     Indication: Product used for unknown indication
     Dosage: 20 MG,  SHE DID NOT TAKE
  6. CETIRIZINE [Concomitant]
     Active Substance: CETIRIZINE HYDROCHLORIDE
     Indication: Product used for unknown indication
     Dosage: 20 MG, SHE DID NOT TAKE
  7. MELATONIN [Concomitant]
     Active Substance: MELATONIN
     Indication: Product used for unknown indication
     Dosage: 20 MG, SHE DID NOT TAKE

REACTIONS (4)
  - Respiratory depression [Recovered/Resolved]
  - Drug interaction [Recovered/Resolved]
  - Upper airway obstruction [Recovered/Resolved]
  - Sedation complication [Recovered/Resolved]
